FAERS Safety Report 13445390 (Version 1)
Quarter: 2017Q2

REPORT INFORMATION
  Report Type: Report from Study
  Country: None (occurrence: US)
  Receive Date: 20170415
  Receipt Date: 20170415
  Transmission Date: 20170830
  Serious: Yes (Hospitalization, Other)
  Sender: FDA-Public Use
  Company Number: US-ABBVIE-16K-163-1575121-00

PATIENT
  Age: 22 Year
  Sex: Female
  Weight: 81.72 kg

DRUGS (7)
  1. CIMZIA [Suspect]
     Active Substance: CERTOLIZUMAB PEGOL
     Route: 065
     Dates: start: 201607
  2. PRENATAL VITAMINS [Concomitant]
     Active Substance: VITAMINS
     Indication: PRODUCT USED FOR UNKNOWN INDICATION
     Dosage: ONCE DAILY
  3. HUMIRA [Suspect]
     Active Substance: ADALIMUMAB
     Route: 058
     Dates: start: 2014, end: 20160219
  4. HUMIRA [Suspect]
     Active Substance: ADALIMUMAB
     Dosage: AFTER 2 WEEKS- LOADING DOSE
     Route: 058
     Dates: start: 2014, end: 2014
  5. HUMIRA [Suspect]
     Active Substance: ADALIMUMAB
     Indication: CROHN^S DISEASE
     Dosage: DAY 1- LOADING DOSE
     Route: 058
     Dates: start: 2014, end: 2014
  6. CIMZIA [Suspect]
     Active Substance: CERTOLIZUMAB PEGOL
     Indication: PRODUCT USED FOR UNKNOWN INDICATION
     Route: 065
     Dates: start: 201603, end: 201603
  7. METFORMIN [Concomitant]
     Active Substance: METFORMIN HYDROCHLORIDE
     Indication: HIDRADENITIS

REACTIONS (11)
  - Anaphylactic reaction [Recovered/Resolved]
  - Dyspnoea [Recovered/Resolved]
  - Incision site infection [Recovered/Resolved]
  - Exposure during pregnancy [Unknown]
  - Incision site infection [Recovered/Resolved]
  - Live birth [Unknown]
  - Dyspnoea [Recovered/Resolved]
  - Swelling [Unknown]
  - Premature labour [Recovered/Resolved]
  - Anaphylactic reaction [Recovered/Resolved]
  - Clostridium difficile infection [Recovered/Resolved]

NARRATIVE: CASE EVENT DATE: 201602
